FAERS Safety Report 22076031 (Version 1)
Quarter: 2023Q1

REPORT INFORMATION
  Report Type: Spontaneous
  Country: FI (occurrence: FI)
  Receive Date: 20230308
  Receipt Date: 20230308
  Transmission Date: 20230417
  Serious: Yes (Death)
  Sender: FDA-Public Use
  Company Number: FI-BAXTER-2023BAX014727

PATIENT

DRUGS (1)
  1. SODIUM CHLORIDE [Suspect]
     Active Substance: SODIUM CHLORIDE
     Indication: Device priming
     Dosage: AT UNSPECIFIED DOSE AND FREQUENCY (BAG 6 CF 2000 ML BILUER SCV)
     Route: 065

REACTIONS (1)
  - Road traffic accident [Fatal]
